FAERS Safety Report 9317253 (Version 1)
Quarter: 2013Q2

REPORT INFORMATION
  Report Type: Spontaneous
  Country: US (occurrence: US)
  Receive Date: 20130530
  Receipt Date: 20130530
  Transmission Date: 20140414
  Serious: No
  Sender: FDA-Public Use
  Company Number: US-NOVEN-12US004798

PATIENT
  Age: 10 Year
  Sex: Male

DRUGS (3)
  1. DAYTRANA [Suspect]
     Indication: ATTENTION DEFICIT/HYPERACTIVITY DISORDER
     Dosage: 10 MG, QD
     Route: 062
     Dates: start: 20120609
  2. STRATTERA [Concomitant]
     Dosage: 80 MG, UNK
     Route: 048
  3. RISPERDAL [Concomitant]
     Dosage: 10 MG, UNK
     Route: 048

REACTIONS (3)
  - Drug administration error [Recovered/Resolved]
  - Product quality issue [Unknown]
  - No adverse event [None]
